FAERS Safety Report 8834185 (Version 2)
Quarter: 2012Q4

REPORT INFORMATION
  Report Type: 
  Country: US (occurrence: US)
  Receive Date: 20121010
  Receipt Date: 20121121
  Transmission Date: 20130627
  Serious: No
  Sender: FDA-Public Use
  Company Number: US-ASTRAZENECA-2012SE77092

PATIENT
  Age: 49 Year
  Sex: Male

DRUGS (1)
  1. SEROQUEL XR [Suspect]
     Route: 048

REACTIONS (5)
  - Bipolar disorder [Unknown]
  - Paranoia [Unknown]
  - Schizophrenia [Unknown]
  - Malaise [Unknown]
  - Drug dose omission [Unknown]
